FAERS Safety Report 25411163 (Version 1)
Quarter: 2025Q2

REPORT INFORMATION
  Report Type: Spontaneous
  Country: US (occurrence: US)
  Receive Date: 20250609
  Receipt Date: 20250609
  Transmission Date: 20250716
  Serious: No
  Sender: AMGEN
  Company Number: US-AMGEN-USASP2025107956

PATIENT
  Age: 62 Year
  Sex: Female

DRUGS (1)
  1. REPATHA [Suspect]
     Active Substance: EVOLOCUMAB
     Indication: Product used for unknown indication
     Dosage: 140 MILLIGRAM, Q2WK (PRODUCT STRENGTH- 140MG)
     Route: 065
     Dates: start: 202504

REACTIONS (5)
  - Injury associated with device [Unknown]
  - Accidental exposure to product [Unknown]
  - Device use error [Unknown]
  - Incorrect dose administered by device [Unknown]
  - Product communication issue [Unknown]

NARRATIVE: CASE EVENT DATE: 20250530
